FAERS Safety Report 4985745-7 (Version None)
Quarter: 2006Q2

REPORT INFORMATION
  Report Type: 
  Country: None (occurrence: None)
  Receive Date: 20060428
  Receipt Date: 20060420
  Transmission Date: 20061013
  Serious: Yes (Other)
  Sender: FDA-Public Use
  Company Number: PHBS2006BR06059

PATIENT
  Age: 7 Year
  Sex: Female

DRUGS (2)
  1. TEGRETOL [Suspect]
     Indication: CEREBRAL DISORDER
     Dosage: 5 ML, Q8H
     Route: 048
  2. TEGRETOL [Suspect]
     Dosage: 2.5 ML, Q8H
     Route: 048

REACTIONS (5)
  - DYSPEPSIA [None]
  - GASTRITIS [None]
  - PHARMACEUTICAL PRODUCT COMPLAINT [None]
  - SOMNOLENCE [None]
  - VOMITING [None]
